FAERS Safety Report 7797892-5 (Version None)
Quarter: 2011Q4

REPORT INFORMATION
  Report Type: 
  Country: None (occurrence: None)
  Receive Date: 20111005
  Receipt Date: 20110927
  Transmission Date: 20120403
  Serious: Yes (Hospitalization, Other)
  Sender: FDA-Public Use
  Company Number: US-MERCK-1108USA01134

PATIENT
  Age: 78 Year
  Sex: Female

DRUGS (3)
  1. COUMADIN [Concomitant]
     Route: 065
     Dates: start: 20080101
  2. ATENOLOL [Concomitant]
     Route: 065
     Dates: start: 20080101
  3. FOSAMAX [Suspect]
     Indication: OSTEOPOROSIS
     Route: 048
     Dates: start: 19990101, end: 20080101

REACTIONS (10)
  - IRRITABLE BOWEL SYNDROME [None]
  - WRIST FRACTURE [None]
  - DEPRESSION [None]
  - FEMUR FRACTURE [None]
  - PELVIC FRACTURE [None]
  - ANXIETY [None]
  - BLOOD CHOLESTEROL INCREASED [None]
  - HYPERTENSION [None]
  - CEREBROVASCULAR ACCIDENT [None]
  - TOOTH DISORDER [None]
